FAERS Safety Report 21173409 (Version 5)
Quarter: 2022Q3

REPORT INFORMATION
  Report Type: Report from Study
  Country: CZ (occurrence: CZ)
  Receive Date: 20220804
  Receipt Date: 20220928
  Transmission Date: 20221026
  Serious: Yes (Other)
  Sender: FDA-Public Use
  Company Number: CZ-NOVARTISPH-NVSC2022CZ136861

PATIENT
  Age: 56 Year
  Sex: Female
  Weight: 60 kg

DRUGS (15)
  1. KESIMPTA [Suspect]
     Active Substance: OFATUMUMAB
     Indication: Multiple sclerosis
     Dosage: UNK UNK, QW (1X WEEKLY FOR 3 WEEKS THEN 1 WEEK PAUSE, THEN 1X MONTHLY)
     Route: 058
     Dates: start: 20220527
  2. KESIMPTA [Suspect]
     Active Substance: OFATUMUMAB
     Dosage: 20 MG (3X ONCE A WEEK, THEN ONE WEEK NO ADMINISTRATION, THEN 1 WEEK ADMINISTRATION AND THEN EVERY CA
     Route: 058
  3. KESIMPTA [Suspect]
     Active Substance: OFATUMUMAB
     Dosage: UNK UNK, QW (1X WEEKLY)
     Route: 058
     Dates: start: 20220603
  4. KESIMPTA [Suspect]
     Active Substance: OFATUMUMAB
     Dosage: UNK (1X MONTHLY)
     Route: 065
     Dates: start: 20220624
  5. KESIMPTA [Suspect]
     Active Substance: OFATUMUMAB
     Dosage: 20 MG, QMO, 6 TH DOSE
     Route: 058
     Dates: start: 20220824
  6. CITALOPRAM [Concomitant]
     Active Substance: CITALOPRAM HYDROBROMIDE
     Indication: Depression
     Dosage: 20 MG, QD (1-0-0)
     Route: 065
  7. OMEPRAZOLE [Concomitant]
     Active Substance: OMEPRAZOLE
     Indication: Abdominal discomfort
     Dosage: 20 MG, QD (0-1-0)
     Route: 065
  8. CALTRATE [Concomitant]
     Active Substance: CALCIUM CARBONATE
     Indication: Product used for unknown indication
     Dosage: UNK, QD (1-0-0)
     Route: 065
  9. RIVOTRIL [Concomitant]
     Active Substance: CLONAZEPAM
     Indication: Restless legs syndrome
     Dosage: 0.5 MG QN (0-0-1 (2))
     Route: 065
  10. VIGANTOL [Concomitant]
     Indication: Product used for unknown indication
     Dosage: 15 DRP, QW
     Route: 065
  11. CARBIDOPA\LEVODOPA [Concomitant]
     Active Substance: CARBIDOPA\LEVODOPA
     Indication: Restless legs syndrome
     Dosage: 100 MG, QD (0-0-1)
     Route: 065
  12. MAGNESIUM CARBONATE\MAGNESIUM OXIDE [Concomitant]
     Active Substance: MAGNESIUM CARBONATE\MAGNESIUM OXIDE
     Indication: Product used for unknown indication
     Dosage: UNK, PRN
     Route: 065
  13. BACLOFEN [Concomitant]
     Active Substance: BACLOFEN
     Indication: Restless legs syndrome
     Dosage: 10 MG, QD (ADJUSTED AS NEEDED)
     Route: 065
  14. TAMSULOSIN HYDROCHLORIDE [Concomitant]
     Active Substance: TAMSULOSIN HYDROCHLORIDE
     Indication: Incontinence
     Dosage: UNK, QD (1-0-0)
     Route: 065
  15. ESCHERICHIA COLI [Concomitant]
     Active Substance: ESCHERICHIA COLI
     Indication: Incontinence
     Dosage: UNK
     Route: 065

REACTIONS (15)
  - Liver function test increased [Recovered/Resolved]
  - Leukopenia [Unknown]
  - Pyrexia [Recovered/Resolved]
  - Chills [Recovered/Resolved]
  - Rhinitis [Recovered/Resolved]
  - Body temperature increased [Recovered/Resolved]
  - Rhinitis [Recovered/Resolved]
  - Body temperature increased [Recovered/Resolved]
  - Fatigue [Recovering/Resolving]
  - Mobility decreased [Recovering/Resolving]
  - Alanine aminotransferase increased [Unknown]
  - COVID-19 [Recovering/Resolving]
  - Nasopharyngitis [Recovering/Resolving]
  - Hyperthermia [Not Recovered/Not Resolved]
  - Body temperature increased [Recovering/Resolving]

NARRATIVE: CASE EVENT DATE: 20220527
